FAERS Safety Report 7908052-9 (Version None)
Quarter: 2011Q4

REPORT INFORMATION
  Report Type: 
  Country: None (occurrence: None)
  Receive Date: 20111110
  Receipt Date: 20111031
  Transmission Date: 20120403
  Serious: Yes (Hospitalization, Other)
  Sender: FDA-Public Use
  Company Number: BR-BRISTOL-MYERS SQUIBB COMPANY-16209397

PATIENT
  Age: 81 Year
  Sex: Female
  Weight: 80 kg

DRUGS (2)
  1. IRBESARTAN + HYDROCHLOROTHIAZIDE [Suspect]
     Indication: HYPERTENSION
     Dosage: 1DF: 1 TAB. APROZIDE 300/12.5 MG/TABS. THERAPY STARTED 3 YRS AGO
     Route: 048
  2. TAMOXIFEN CITRATE [Concomitant]

REACTIONS (3)
  - DRUG INEFFECTIVE [None]
  - SPINAL DISORDER [None]
  - BREAST CANCER [None]
